FAERS Safety Report 7914376-1 (Version None)
Quarter: 2011Q4

REPORT INFORMATION
  Report Type: 
  Country: None (occurrence: None)
  Receive Date: 20111115
  Receipt Date: 20111102
  Transmission Date: 20120403
  Serious: Yes (Death, Other)
  Sender: FDA-Public Use
  Company Number: US-ELI_LILLY_AND_COMPANY-US201007005377

PATIENT
  Sex: Female
  Weight: 45.36 kg

DRUGS (15)
  1. LIDODERM [Concomitant]
     Dosage: 1 DF, QD
  2. POLYETHYLENE GLYCOL [Concomitant]
     Dosage: UNK, QD
  3. ATIVAN [Concomitant]
     Dosage: 5 MG, PRN
  4. CHLORTHALIDONE [Concomitant]
     Dosage: 1 DF, QD
  5. LISINOPRIL [Concomitant]
     Dosage: 1 DF, QD
  6. ASPIRIN [Concomitant]
     Dosage: 1 DF, QD
  7. MULTI-VITAMIN [Concomitant]
     Dosage: 1 DF, QD
  8. ARICEPT [Concomitant]
     Dosage: 1 DF, QD
  9. VITAMIN D [Concomitant]
     Dosage: 4 DF, QD
  10. MELATONIN [Concomitant]
     Dosage: 1 DF, QD
  11. HYDROCODONE BITARTRATE [Concomitant]
     Dosage: 500 MG, PRN
  12. SIMVASTATIN [Concomitant]
     Dosage: 1 DF, QD
  13. CALCIUM CARBONATE [Concomitant]
     Dosage: 1 DF, QD
  14. FORTEO [Suspect]
     Indication: OSTEOPOROSIS
     Dosage: 20 UG, QD
     Route: 065
  15. CITALOPRAM HYDROBROMIDE [Concomitant]
     Dosage: 1 DF, QD

REACTIONS (3)
  - ASTHENIA [None]
  - ACUTE MYOCARDIAL INFARCTION [None]
  - FATIGUE [None]
